FAERS Safety Report 24543272 (Version 1)
Quarter: 2024Q4

REPORT INFORMATION
  Report Type: Spontaneous
  Country: IT (occurrence: IT)
  Receive Date: 20241024
  Receipt Date: 20241024
  Transmission Date: 20250114
  Serious: Yes (Other)
  Sender: ALEXION PHARMACEUTICALS
  Company Number: None

PATIENT
  Age: 75 Year

DRUGS (7)
  1. QUETIAPINE FUMARATE [Suspect]
     Active Substance: QUETIAPINE FUMARATE
  2. QUETIAPINE FUMARATE [Suspect]
     Active Substance: QUETIAPINE FUMARATE
  3. QUETIAPINE FUMARATE [Suspect]
     Active Substance: QUETIAPINE FUMARATE
  4. QUETIAPINE FUMARATE [Suspect]
     Active Substance: QUETIAPINE FUMARATE
  5. KEPPRA [Suspect]
     Active Substance: LEVETIRACETAM
  6. KEPPRA [Suspect]
     Active Substance: LEVETIRACETAM
  7. HALOPERIDOL [Concomitant]
     Active Substance: HALOPERIDOL

REACTIONS (14)
  - Urinary retention [Unknown]
  - Loss of consciousness [Unknown]
  - Faecaloma [Unknown]
  - Partial seizures [Unknown]
  - Cognitive disorder [Unknown]
  - Pneumonia [Recovering/Resolving]
  - Hyponatraemia [Unknown]
  - Loss of personal independence in daily activities [Unknown]
  - Extrapyramidal disorder [Unknown]
  - Mental disorder [Unknown]
  - Constipation [Unknown]
  - Hypotension [Unknown]
  - Generalised anxiety disorder [Unknown]
  - Urinary tract infection [Unknown]
